FAERS Safety Report 12712753 (Version 1)
Quarter: 2016Q3

REPORT INFORMATION
  Report Type: Spontaneous
  Country: GB (occurrence: GB)
  Receive Date: 20160902
  Receipt Date: 20160902
  Transmission Date: 20161109
  Serious: Yes (Other)
  Sender: FDA-Public Use
  Company Number: GB-PFIZER INC-2016408504

PATIENT
  Age: 43 Year
  Sex: Female
  Weight: 60.32 kg

DRUGS (1)
  1. SERTRALINE HCL [Suspect]
     Active Substance: SERTRALINE HYDROCHLORIDE
     Indication: DEPRESSION
     Dosage: 100 MG, UNK
     Route: 048
     Dates: start: 20160628

REACTIONS (17)
  - Hypoglycaemia [Not Recovered/Not Resolved]
  - Fatigue [Recovering/Resolving]
  - Decreased appetite [Recovering/Resolving]
  - Dizziness [Recovered/Resolved with Sequelae]
  - Bruxism [Not Recovered/Not Resolved]
  - Condition aggravated [Not Recovered/Not Resolved]
  - Insomnia [Recovered/Resolved with Sequelae]
  - Diarrhoea [Not Recovered/Not Resolved]
  - Abnormal dreams [Recovered/Resolved]
  - Nausea [Recovered/Resolved with Sequelae]
  - Essential tremor [Recovered/Resolved]
  - Blepharospasm [Not Recovered/Not Resolved]
  - Muscle twitching [Recovering/Resolving]
  - Anxiety [Not Recovered/Not Resolved]
  - Depression [Recovered/Resolved with Sequelae]
  - Headache [Recovering/Resolving]
  - Hot flush [Recovered/Resolved]

NARRATIVE: CASE EVENT DATE: 20160628
